FAERS Safety Report 6966156-1 (Version None)
Quarter: 2010Q3

REPORT INFORMATION
  Report Type: 
  Country: None (occurrence: None)
  Receive Date: 20100903
  Receipt Date: 20100825
  Transmission Date: 20110219
  Serious: Yes (Other)
  Sender: FDA-Public Use
  Company Number: GXKR2010TW09641

PATIENT
  Age: 63 Year
  Sex: Male

DRUGS (4)
  1. QUETIAPINE (NGX) [Interacting]
     Indication: BIPOLAR DISORDER
     Dosage: 50 MG/DAY
     Route: 065
  2. QUETIAPINE (NGX) [Interacting]
     Dosage: TITRATED UP TO 300 MG/DAY GRADUALLY OVER 3 WEEKS
     Route: 065
  3. VALPROIC ACID [Suspect]
     Indication: BIPOLAR DISORDER
     Dosage: 1000 MG/DAY
     Route: 065
  4. DIURETICS [Concomitant]
     Indication: HYPERTENSION

REACTIONS (4)
  - CONFUSIONAL STATE [None]
  - DELIRIUM [None]
  - DRUG INTERACTION [None]
  - HALLUCINATIONS, MIXED [None]
